FAERS Safety Report 6822898-X (Version None)
Quarter: 2010Q3

REPORT INFORMATION
  Report Type: 
  Country: None (occurrence: None)
  Receive Date: 20100708
  Receipt Date: 20100630
  Transmission Date: 20110219
  Serious: Yes (Hospitalization)
  Sender: FDA-Public Use
  Company Number: GXKR2010BE06269

PATIENT
  Sex: Male

DRUGS (4)
  1. DICLOFENAC SANDOZ (NGX) [Suspect]
     Indication: WOUND
     Dosage: 100 MG, TID
     Route: 048
     Dates: start: 20090909, end: 20091001
  2. DAFALGAN [Concomitant]
  3. TRADONAL [Concomitant]
  4. AUGMENTIN '125' [Concomitant]
     Dosage: 875 MG

REACTIONS (1)
  - RENAL ARTERY THROMBOSIS [None]
